FAERS Safety Report 8239352-3 (Version None)
Quarter: 2012Q1

REPORT INFORMATION
  Report Type: 
  Country: None (occurrence: None)
  Receive Date: 20120326
  Receipt Date: 20120312
  Transmission Date: 20120608
  Serious: Yes (Death)
  Sender: FDA-Public Use
  Company Number: 2007AL005119

PATIENT
  Age: 23 Year
  Sex: Male
  Weight: 106 kg

DRUGS (15)
  1. DIAZEPAM [Concomitant]
  2. ORAMORPH SR [Concomitant]
  3. PREDFOAM [Concomitant]
  4. CHLORPHENIRAMINE MALEATE [Suspect]
     Dosage: 4 MG;QD;PO
     Route: 048
     Dates: start: 20051230
  5. HYDROCODONE BITARTRATE [Concomitant]
  6. TRAMADOL HCL [Concomitant]
  7. OPIATE [Concomitant]
  8. FENTANYL-100 [Suspect]
     Indication: CROHN'S DISEASE
     Dosage: 100 UG;TDER
     Route: 062
     Dates: start: 20051225
  9. FENTANYL-100 [Suspect]
     Indication: ANALGESIC THERAPY
     Dosage: 100 UG;TDER
     Route: 062
     Dates: start: 20051225
  10. FENTANYL-100 [Suspect]
     Indication: HEADACHE
     Dosage: 100 UG;TDER
     Route: 062
     Dates: start: 20051225
  11. TEMAZEPAM [Suspect]
     Dosage: 20 MG
     Dates: start: 20051230
  12. CYCLIZINE (CYCLIZINE) [Suspect]
     Dosage: 50 MG;TID
     Dates: start: 20051223
  13. AMITRIPTYLINE HCL [Concomitant]
  14. TEMAZEPAM [Concomitant]
  15. ACETAMINOPHEN [Concomitant]

REACTIONS (17)
  - PNEUMONIA [None]
  - HEADACHE [None]
  - DRY MOUTH [None]
  - DIZZINESS [None]
  - ANXIETY [None]
  - TOXICITY TO VARIOUS AGENTS [None]
  - DYSARTHRIA [None]
  - DEPRESSED LEVEL OF CONSCIOUSNESS [None]
  - PHOTOPHOBIA [None]
  - DRUG INTERACTION [None]
  - OVERDOSE [None]
  - HYPERSENSITIVITY [None]
  - MENINGITIS [None]
  - PRURITUS GENERALISED [None]
  - AMNESIA [None]
  - MUSCULOSKELETAL STIFFNESS [None]
  - VISION BLURRED [None]
